FAERS Safety Report 5652215-2 (Version None)
Quarter: 2008Q1

REPORT INFORMATION
  Report Type: 
  Country: None (occurrence: None)
  Receive Date: 20080304
  Receipt Date: 20080222
  Transmission Date: 20080703
  Serious: Yes (Hospitalization)
  Sender: FDA-Public Use
  Company Number: GXKR2008NL01942

PATIENT
  Age: 73 Year
  Sex: Male

DRUGS (4)
  1. SULFASALAZINE [Suspect]
     Indication: RHEUMATOID ARTHRITIS
     Dosage: 2 G, BID
  2. PREDNISONE TAB [Concomitant]
  3. METHOTREXATE [Concomitant]
  4. FOLIC ACID [Concomitant]

REACTIONS (8)
  - HYPOAESTHESIA [None]
  - MUSCULAR WEAKNESS [None]
  - MYOPATHY [None]
  - NORMOCHROMIC NORMOCYTIC ANAEMIA [None]
  - POLYNEUROPATHY [None]
  - SKIN NODULE [None]
  - SKIN ULCER [None]
  - WEGENER'S GRANULOMATOSIS [None]
